FAERS Safety Report 22334734 (Version 1)
Quarter: 2023Q2

REPORT INFORMATION
  Report Type: Spontaneous
  Country: US (occurrence: None)
  Receive Date: 20230517
  Receipt Date: 20230517
  Transmission Date: 20230721
  Serious: No
  Sender: FDA-Public Use
  Company Number: US-ROCHE-3119429

PATIENT
  Sex: Male

DRUGS (9)
  1. ACTEMRA [Suspect]
     Active Substance: TOCILIZUMAB
     Indication: Hyperlipidaemia
     Dosage: 162MG 0.9 ML SQ
     Route: 058
     Dates: start: 20200609
  2. ACTEMRA [Suspect]
     Active Substance: TOCILIZUMAB
  3. FOLIC ACID [Concomitant]
     Active Substance: FOLIC ACID
  4. LOSARTAN [Concomitant]
     Active Substance: LOSARTAN
  5. POTASSIUM [Concomitant]
     Active Substance: POTASSIUM
  6. METHOTREXATE [Concomitant]
     Active Substance: METHOTREXATE
  7. NEXIUM [Concomitant]
     Active Substance: ESOMEPRAZOLE MAGNESIUM
  8. OTREXUP [Concomitant]
     Active Substance: METHOTREXATE
  9. TRICOR [Concomitant]
     Active Substance: FENOFIBRATE

REACTIONS (1)
  - Illness [Unknown]
